FAERS Safety Report 14222034 (Version 1)
Quarter: 2017Q4

REPORT INFORMATION
  Report Type: Spontaneous
  Country: US (occurrence: US)
  Receive Date: 20171124
  Receipt Date: 20171124
  Transmission Date: 20180321
  Serious: No
  Sender: FDA-Public Use
  Company Number: US-B.I. PHARMACEUTICALS,INC./RIDGEFIELD-2017-BI-062263

PATIENT
  Age: 61 Year
  Sex: Female

DRUGS (3)
  1. METFORMIN [Concomitant]
     Active Substance: METFORMIN HYDROCHLORIDE
     Indication: TYPE 2 DIABETES MELLITUS
     Dosage: 1 TABLET TWICE A DAY;  FORM STRENGTH: 1000 MG; FORMULATION: TABLET
     Route: 048
  2. JARDIANCE [Suspect]
     Active Substance: EMPAGLIFLOZIN
     Indication: TYPE 2 DIABETES MELLITUS
     Dosage: FORM STRENGTH: 25 MG; FORMULATION: TABLET? ADMINISTRATION CORRECT? NR(NOT REPORTED) ?ACTION(S) TAKEN
     Route: 048
     Dates: start: 2017, end: 2017
  3. JANUVIA [Concomitant]
     Active Substance: SITAGLIPTIN PHOSPHATE
     Indication: TYPE 2 DIABETES MELLITUS
     Dosage: 1 TABLET DAILY;  FORM STRENGTH: 100 MG; FORMULATION: TABLET
     Route: 048

REACTIONS (2)
  - Creatinine renal clearance decreased [Recovered/Resolved]
  - Hepatic enzyme increased [Recovered/Resolved]

NARRATIVE: CASE EVENT DATE: 2017
